FAERS Safety Report 4423005-3 (Version None)
Quarter: 2004Q3

REPORT INFORMATION
  Report Type: 
  Country: None (occurrence: None)
  Receive Date: 20040810
  Receipt Date: 20040726
  Transmission Date: 20050211
  Serious: Yes (Death)
  Sender: FDA-Public Use
  Company Number: 2004S1001785

PATIENT
  Age: 77 Year
  Sex: Male
  Weight: 73.4827 kg

DRUGS (7)
  1. CLOZAPINE [Suspect]
     Dosage: 50MG QD, ORAL
     Route: 048
     Dates: start: 20031013, end: 20040601
  2. DONEPEZIL HCL [Concomitant]
  3. MIDODRINE HCL [Concomitant]
  4. SERTRALINE HCL [Concomitant]
  5. CLOPIDOGREL BISULFATE [Concomitant]
  6. CARBIDOPA AND LEVODOPA [Concomitant]
  7. QUETIAPINE [Concomitant]

REACTIONS (2)
  - CONFUSIONAL STATE [None]
  - MOVEMENT DISORDER [None]
